FAERS Safety Report 11583371 (Version 1)
Quarter: 2015Q4

REPORT INFORMATION
  Report Type: Spontaneous
  Country: US (occurrence: US)
  Receive Date: 20151001
  Receipt Date: 20151001
  Transmission Date: 20160304
  Serious: No
  Sender: FDA-Public Use
  Company Number: US-009507513-1509USA011108

PATIENT
  Age: 32 Year
  Sex: Female
  Weight: 95.69 kg

DRUGS (2)
  1. ALBUTEROL. [Concomitant]
     Active Substance: ALBUTEROL
     Dosage: UNK
  2. NEXPLANON [Suspect]
     Active Substance: ETONOGESTREL
     Indication: CONTRACEPTION
     Dosage: 1 ROD OF 68 MG/ 3 YEARS
     Route: 059
     Dates: start: 20130618

REACTIONS (4)
  - Upper respiratory tract infection [Not Recovered/Not Resolved]
  - Oral infection [Not Recovered/Not Resolved]
  - Unintended pregnancy [Unknown]
  - Pregnancy with implant contraceptive [Unknown]

NARRATIVE: CASE EVENT DATE: 20150907
